FAERS Safety Report 21987101 (Version 1)
Quarter: 2023Q1

REPORT INFORMATION
  Report Type: Report from Study
  Country: CO (occurrence: CO)
  Receive Date: 20230213
  Receipt Date: 20230213
  Transmission Date: 20230417
  Serious: Yes (Other)
  Sender: FDA-Public Use
  Company Number: CO-JNJFOC-20230205752

PATIENT
  Age: 64 Year
  Sex: Male
  Weight: 84 kg

DRUGS (1)
  1. APALUTAMIDE [Suspect]
     Active Substance: APALUTAMIDE
     Indication: Hormone-dependent prostate cancer
     Dosage: FREQUENCY TIME- 24 (HOUR)
     Route: 048
     Dates: start: 20220612

REACTIONS (3)
  - Hypersensitivity vasculitis [Not Recovered/Not Resolved]
  - Breast enlargement [Not Recovered/Not Resolved]
  - Lip swelling [Not Recovered/Not Resolved]

NARRATIVE: CASE EVENT DATE: 20220612
